FAERS Safety Report 22047646 (Version 1)
Quarter: 2023Q1

REPORT INFORMATION
  Report Type: Spontaneous
  Country: DE (occurrence: DE)
  Receive Date: 20230301
  Receipt Date: 20230301
  Transmission Date: 20230418
  Serious: Yes (Hospitalization, Other)
  Sender: FDA-Public Use
  Company Number: DE-MODERNATX, INC.-MOD-2022-659726

PATIENT
  Age: 51 Year
  Sex: Female
  Weight: 90 kg

DRUGS (1)
  1. TAMSULOSIN [Suspect]
     Active Substance: TAMSULOSIN
     Indication: Product used for unknown indication
     Dosage: 0.4 MG, QD, (0-0-0-1)
     Route: 065
     Dates: start: 20220519

REACTIONS (33)
  - Hemiparesis [Unknown]
  - Pulmonary embolism [Recovered/Resolved with Sequelae]
  - Peripheral artery occlusion [Unknown]
  - Cerebrovascular accident [Recovered/Resolved with Sequelae]
  - Pulmonary hypertension [Unknown]
  - Cerebellar infarction [Unknown]
  - Coagulopathy [Unknown]
  - Pelvic venous thrombosis [Unknown]
  - Post stroke seizure [Unknown]
  - COVID-19 [Unknown]
  - Cardiac failure [Unknown]
  - Congestive cardiomyopathy [Unknown]
  - Cerebral artery embolism [Unknown]
  - Antiphospholipid syndrome [Unknown]
  - Renal hamartoma [Unknown]
  - Neurogenic bladder [Recovered/Resolved with Sequelae]
  - Cerebellar ischaemia [Unknown]
  - Seizure [Unknown]
  - Lymphoedema [Unknown]
  - Vaginal haemorrhage [Unknown]
  - Gait disturbance [Unknown]
  - Uterine polyp [Unknown]
  - Hepatic cyst [Unknown]
  - Urge incontinence [Recovered/Resolved with Sequelae]
  - Amnestic disorder [Unknown]
  - Cognitive disorder [Unknown]
  - Hypoaesthesia [Unknown]
  - Post thrombotic syndrome [Unknown]
  - Angiomyolipoma [Unknown]
  - Vulvovaginal mycotic infection [Unknown]
  - Venous thrombosis [Unknown]
  - Hypertonia [Unknown]
  - Headache [Unknown]

NARRATIVE: CASE EVENT DATE: 20220101
